FAERS Safety Report 11972867 (Version 3)
Quarter: 2016Q1

REPORT INFORMATION
  Report Type: Report from Study
  Country: US (occurrence: US)
  Receive Date: 20160128
  Receipt Date: 20160228
  Transmission Date: 20160526
  Serious: No
  Sender: FDA-Public Use
  Company Number: PHEH2016US001985

PATIENT
  Sex: Male

DRUGS (1)
  1. GLEEVEC [Suspect]
     Active Substance: IMATINIB MESYLATE
     Indication: SYNOVITIS
     Dosage: 400 MG, QD
     Route: 048
     Dates: start: 20141112, end: 20160121

REACTIONS (4)
  - Arthropathy [Unknown]
  - Arthralgia [Unknown]
  - Product use issue [Unknown]
  - Gait disturbance [Unknown]
